FAERS Safety Report 5875547-1 (Version None)
Quarter: 2008Q3

REPORT INFORMATION
  Report Type: 
  Country: None (occurrence: None)
  Receive Date: 20080909
  Receipt Date: 20080819
  Transmission Date: 20090109
  Serious: Yes (Other)
  Sender: FDA-Public Use
  Company Number: JP-SANOFI-SYNTHELABO-F01200800258

PATIENT
  Sex: Male
  Weight: 67 kg

DRUGS (5)
  1. GLEEVEC [Concomitant]
     Dosage: UNK
     Dates: start: 20020902
  2. ISOVORIN [Suspect]
     Route: 041
     Dates: start: 20080107, end: 20080107
  3. FLUOROURACIL [Suspect]
     Route: 042
     Dates: start: 20080107, end: 20080108
  4. ELPLAT [Suspect]
     Indication: RECTAL CANCER METASTATIC
     Route: 041
     Dates: start: 20080107, end: 20080107
  5. AVASTIN [Suspect]
     Route: 041
     Dates: start: 20080107, end: 20080107

REACTIONS (2)
  - DISSEMINATED INTRAVASCULAR COAGULATION [None]
  - SEPSIS [None]
